FAERS Safety Report 10035282 (Version 1)
Quarter: 2014Q1

REPORT INFORMATION
  Report Type: Report from Study
  Country: US (occurrence: US)
  Receive Date: 20140325
  Receipt Date: 20140325
  Transmission Date: 20141002
  Serious: Yes (Other)
  Sender: FDA-Public Use
  Company Number: PHEH2014US005520

PATIENT
  Age: 69 Year
  Sex: Female

DRUGS (3)
  1. GILENYA [Suspect]
     Indication: MULTIPLE SCLEROSIS
     Dosage: 0.5 MG, DAILY
     Route: 048
     Dates: start: 20140126
  2. DIOVAN [Concomitant]
  3. ZOLPIDEM TARTRATE [Concomitant]

REACTIONS (2)
  - Intraocular pressure increased [Unknown]
  - Nerve injury [Unknown]
